FAERS Safety Report 9382814 (Version 1)
Quarter: 2013Q3

REPORT INFORMATION
  Report Type: Spontaneous
  Country: FR (occurrence: FR)
  Receive Date: 20130703
  Receipt Date: 20130703
  Transmission Date: 20140515
  Serious: Yes (Hospitalization)
  Sender: FDA-Public Use
  Company Number: FR-B.I. PHARMACEUTICALS,INC./RIDGEFIELD-2013-FF-01794FF

PATIENT
  Age: 82 Year
  Sex: Male

DRUGS (6)
  1. PRADAXA [Suspect]
     Indication: ATRIAL FIBRILLATION
     Dosage: 220 MG
     Route: 048
     Dates: start: 20121207
  2. PRADAXA [Suspect]
     Dosage: 220 MG
     Route: 048
     Dates: start: 20130627
  3. INDAPAMID [Concomitant]
     Dosage: EXTENDED RELEASE FORM
  4. RAMIPRIL [Concomitant]
  5. HEMIGOXINE [Concomitant]
  6. DAFALGAN CODEINE [Concomitant]

REACTIONS (1)
  - Inguinal hernia [Unknown]
